FAERS Safety Report 24429858 (Version 2)
Quarter: 2024Q4

REPORT INFORMATION
  Report Type: Spontaneous
  Country: US (occurrence: US)
  Receive Date: 20241012
  Receipt Date: 20241026
  Transmission Date: 20250115
  Serious: Yes (Death, Hospitalization)
  Sender: TEVA
  Company Number: US-TEVA-VS-3252525

PATIENT
  Age: 35 Year
  Sex: Female

DRUGS (6)
  1. CLINDAMYCIN [Suspect]
     Active Substance: CLINDAMYCIN
     Indication: Beta haemolytic streptococcal infection
     Route: 065
  2. LINEZOLID [Suspect]
     Active Substance: LINEZOLID
     Indication: Beta haemolytic streptococcal infection
     Route: 065
  3. CEFEPIME [Suspect]
     Active Substance: CEFEPIME HYDROCHLORIDE
     Indication: Beta haemolytic streptococcal infection
     Route: 065
  4. VANCOMYCIN [Suspect]
     Active Substance: VANCOMYCIN
     Indication: Beta haemolytic streptococcal infection
     Route: 065
  5. METHYLENE BLUE [Suspect]
     Active Substance: METHYLENE BLUE
     Indication: Shock
     Route: 065
  6. IMMUNE GLOBULIN NOS [Suspect]
     Active Substance: IMMUNE GLOBULIN NOS
     Indication: Beta haemolytic streptococcal infection
     Route: 042

REACTIONS (1)
  - Drug ineffective [Fatal]
